FAERS Safety Report 8187574-2 (Version None)
Quarter: 2012Q1

REPORT INFORMATION
  Report Type: 
  Country: None (occurrence: None)
  Receive Date: 20120306
  Receipt Date: 20120227
  Transmission Date: 20120608
  Serious: Yes (Hospitalization)
  Sender: FDA-Public Use
  Company Number: PHHY2012ES016724

PATIENT
  Age: 64 Year
  Sex: Male

DRUGS (1)
  1. METOCLOPRAMIDE [Suspect]
     Indication: VOMITING
     Dosage: 10 MG, UNK
     Route: 030

REACTIONS (1)
  - ELECTROCARDIOGRAM ABNORMAL [None]
